FAERS Safety Report 5526921-4 (Version None)
Quarter: 2007Q4

REPORT INFORMATION
  Report Type: 
  Country: None (occurrence: None)
  Receive Date: 20071127
  Receipt Date: 20071115
  Transmission Date: 20080405
  Serious: Yes (Other)
  Sender: FDA-Public Use
  Company Number: CA-PFIZER INC-2007097969

PATIENT
  Sex: Female

DRUGS (7)
  1. DETROL LA [Suspect]
     Indication: HYPERTONIC BLADDER
     Route: 048
  2. PREMARIN [Concomitant]
     Route: 048
  3. PROVERA [Concomitant]
     Route: 048
  4. CADUET [Concomitant]
     Route: 048
  5. LOSEC [Concomitant]
     Route: 048
  6. CELEBREX [Concomitant]
     Indication: OSTEOARTHRITIS
     Route: 048
  7. ALL OTHER THERAPEUTIC PRODUCTS [Concomitant]
     Indication: GLAUCOMA
     Route: 047

REACTIONS (3)
  - BLOOD GLUCOSE INCREASED [None]
  - MUSCLE SPASMS [None]
  - OCULAR HYPERAEMIA [None]
